FAERS Safety Report 20151291 (Version 1)
Quarter: 2021Q4

REPORT INFORMATION
  Report Type: Spontaneous
  Country: CA (occurrence: None)
  Receive Date: 20211206
  Receipt Date: 20211206
  Transmission Date: 20220303
  Serious: Yes (Other)
  Sender: FDA-Public Use
  Company Number: CA-ROCHE-2967384

PATIENT
  Age: 85 Year
  Sex: Female

DRUGS (33)
  1. RITUXIMAB [Suspect]
     Active Substance: RITUXIMAB
     Indication: Vasculitis
     Route: 042
  2. RITUXIMAB [Suspect]
     Active Substance: RITUXIMAB
     Indication: Microscopic polyangiitis
     Route: 042
  3. RITUXIMAB [Suspect]
     Active Substance: RITUXIMAB
     Route: 042
  4. RITUXIMAB [Suspect]
     Active Substance: RITUXIMAB
     Indication: Vasculitis
     Route: 065
  5. RITUXIMAB [Suspect]
     Active Substance: RITUXIMAB
     Indication: Microscopic polyangiitis
  6. AMLODIPINE [Concomitant]
     Active Substance: AMLODIPINE BESYLATE
     Route: 048
  7. ARANESP [Concomitant]
     Active Substance: DARBEPOETIN ALFA
     Route: 042
  8. ATORVASTATIN CALCIUM [Concomitant]
     Active Substance: ATORVASTATIN CALCIUM
     Route: 065
  9. AZATHIOPRINE [Concomitant]
     Active Substance: AZATHIOPRINE
  10. BENADRYL [Concomitant]
     Active Substance: DIPHENHYDRAMINE HYDROCHLORIDE
     Indication: Premedication
     Route: 048
  11. BISOPROLOL [Concomitant]
     Active Substance: BISOPROLOL
     Route: 048
  12. CALCIUM [Concomitant]
     Active Substance: CALCIUM
  13. CALTRATE [Concomitant]
     Active Substance: CALCIUM CARBONATE
  14. CANDESARTAN [Concomitant]
     Active Substance: CANDESARTAN
     Route: 065
  15. LASIX [Concomitant]
     Active Substance: FUROSEMIDE
  16. LOSARTAN [Concomitant]
     Active Substance: LOSARTAN
  17. METHYLPREDNISOLONE SODIUM SUCCINATE [Concomitant]
     Active Substance: METHYLPREDNISOLONE SODIUM SUCCINATE
     Indication: Premedication
     Route: 042
  18. MIRABEGRON [Concomitant]
     Active Substance: MIRABEGRON
  19. NITROGLYCERIN [Concomitant]
     Active Substance: NITROGLYCERIN
  20. NYSTATIN [Concomitant]
     Active Substance: NYSTATIN
  21. FERROUS FUMARATE [Concomitant]
     Active Substance: FERROUS FUMARATE
     Route: 048
  22. PANTOPRAZOLE SODIUM [Concomitant]
     Active Substance: PANTOPRAZOLE SODIUM
     Route: 048
  23. PREDNISONE [Concomitant]
     Active Substance: PREDNISONE
     Route: 046
  24. PREGABALIN [Concomitant]
     Active Substance: PREGABALIN
  25. RANITIDINE [Concomitant]
     Active Substance: RANITIDINE
     Route: 048
  26. RISEDRONATE SODIUM [Concomitant]
     Active Substance: RISEDRONATE SODIUM
  27. SEPTRA [Concomitant]
     Active Substance: SULFAMETHOXAZOLE\TRIMETHOPRIM
  28. SERC (BETAHISTINE HYDROCHLORIDE) [Concomitant]
     Active Substance: BETAHISTINE HYDROCHLORIDE
  29. SIMETHICONE (DIMETHICONE) [Concomitant]
     Active Substance: DIMETHICONE
     Route: 065
  30. LINAGLIPTIN [Concomitant]
     Active Substance: LINAGLIPTIN
  31. TYLENOL [Concomitant]
     Active Substance: ACETAMINOPHEN
     Indication: Premedication
     Route: 048
  32. VALACYCLOVIR [Concomitant]
     Active Substance: VALACYCLOVIR HYDROCHLORIDE
  33. VALTREX [Concomitant]
     Active Substance: VALACYCLOVIR HYDROCHLORIDE

REACTIONS (13)
  - Blood pressure increased [Unknown]
  - Blood pressure systolic increased [Unknown]
  - Burning sensation [Unknown]
  - Cardiomegaly [Unknown]
  - Crepitations [Unknown]
  - Fatigue [Unknown]
  - Hypertension [Unknown]
  - Oedema peripheral [Unknown]
  - Oxygen saturation decreased [Unknown]
  - Palpitations [Unknown]
  - Proteinuria [Unknown]
  - Pulmonary oedema [Unknown]
  - Visual impairment [Unknown]
